FAERS Safety Report 6106184-1 (Version None)
Quarter: 2009Q1

REPORT INFORMATION
  Report Type: 
  Country: None (occurrence: None)
  Receive Date: 20090306
  Receipt Date: 20090304
  Transmission Date: 20090719
  Serious: Yes (Death, Hospitalization, Other)
  Sender: FDA-Public Use
  Company Number: PHHY2009MX07432

PATIENT
  Sex: Female

DRUGS (1)
  1. DIOVAN HCT [Suspect]
     Indication: HYPERTENSION
     Dosage: UNK
     Route: 048
     Dates: start: 20050601

REACTIONS (7)
  - CARDIO-RESPIRATORY ARREST [None]
  - DECUBITUS ULCER [None]
  - FALL [None]
  - HIP FRACTURE [None]
  - INFECTION [None]
  - MYOCARDIAL INFARCTION [None]
  - PROSTHESIS IMPLANTATION [None]
